FAERS Safety Report 4593903-9 (Version None)
Quarter: 2005Q1

REPORT INFORMATION
  Report Type: 
  Country: None (occurrence: None)
  Receive Date: 20050218
  Receipt Date: 20050202
  Transmission Date: 20050727
  Serious: Yes (Other)
  Sender: FDA-Public Use
  Company Number: 200509249

PATIENT
  Age: 57 Year
  Sex: Male

DRUGS (2)
  1. IVIG (UNKNOWN) [Suspect]
     Indication: CONDUCTION DISORDER
     Dosage: 600 MG/KG DAILY IV
     Route: 042
  2. IVIG (UNKNOWN) [Suspect]
     Indication: NEUROPATHY
     Dosage: 600 MG/KG DAILY IV
     Route: 042

REACTIONS (4)
  - DYSPHASIA [None]
  - EMBOLISM [None]
  - FACIAL PALSY [None]
  - TRANSIENT ISCHAEMIC ATTACK [None]
